FAERS Safety Report 8805287 (Version 2)
Quarter: 2012Q4

REPORT INFORMATION
  Report Type: 
  Country: US (occurrence: US)
  Receive Date: 20120924
  Receipt Date: 20121023
  Transmission Date: 20130627
  Serious: Yes (Death)
  Sender: FDA-Public Use
  Company Number: US-ROCHE-1126365

PATIENT
  Sex: Male

DRUGS (4)
  1. AVASTIN [Suspect]
     Indication: PANCREATIC CARCINOMA
     Route: 065
  2. XELODA [Suspect]
     Indication: PANCREATIC CARCINOMA
     Route: 065
  3. GEMZAR [Concomitant]
  4. ARANESP [Concomitant]

REACTIONS (1)
  - Death [Fatal]
